FAERS Safety Report 7365170-4 (Version None)
Quarter: 2011Q1

REPORT INFORMATION
  Report Type: 
  Country: None (occurrence: None)
  Receive Date: 20110321
  Receipt Date: 20110304
  Transmission Date: 20110831
  Serious: Yes (Hospitalization, Other)
  Sender: FDA-Public Use
  Company Number: PHHY2010US83141

PATIENT
  Sex: Female
  Weight: 52 kg

DRUGS (3)
  1. GLEEVEC [Suspect]
     Indication: ACUTE LYMPHOCYTIC LEUKAEMIA
     Dosage: 500 MG DAILY
     Route: 048
     Dates: start: 20100526
  2. ETOPOSIDE [Suspect]
     Indication: LEUKAEMIA
     Dosage: 100 MG/M2, DAILY
     Dates: start: 20101108, end: 20101112
  3. CYCLOPHOSPHAMIDE [Suspect]
     Indication: LEUKAEMIA
     Dosage: 300 MG/M2, DAILY
     Dates: start: 20101108, end: 20101112

REACTIONS (6)
  - PAIN IN EXTREMITY [None]
  - SINUSITIS [None]
  - PYELONEPHRITIS [None]
  - DYSPNOEA [None]
  - WHITE BLOOD CELL COUNT DECREASED [None]
  - PNEUMONIA [None]
